FAERS Safety Report 7765239-6 (Version None)
Quarter: 2011Q3

REPORT INFORMATION
  Report Type: 
  Country: None (occurrence: None)
  Receive Date: 20110921
  Receipt Date: 20110914
  Transmission Date: 20111222
  Serious: Yes (Death)
  Sender: FDA-Public Use
  Company Number: US-GLAXOSMITHKLINE-A0945330A

PATIENT
  Age: 60 Year
  Sex: Female

DRUGS (3)
  1. ONDANSETRON [Concomitant]
  2. VOTRIENT [Suspect]
     Indication: RENAL CANCER
     Dosage: 600MG PER DAY
     Route: 048
     Dates: start: 20110721, end: 20110817
  3. OXYCODONE HCL [Concomitant]

REACTIONS (1)
  - DEATH [None]
